FAERS Safety Report 23543848 (Version 1)
Quarter: 2024Q1

REPORT INFORMATION
  Report Type: Spontaneous
  Country: US (occurrence: None)
  Receive Date: 20240216
  Receipt Date: 20240216
  Transmission Date: 20240410
  Serious: Yes (Disabling)
  Sender: FDA-Public Use
  Company Number: None

PATIENT
  Age: 58 Year
  Sex: Male

DRUGS (9)
  1. CABOMETYX [Suspect]
     Active Substance: CABOZANTINIB S-MALATE
     Indication: Renal cell carcinoma
     Dosage: FREQUENCY : DAILY;?
     Route: 048
  2. ACETAMINOPHEN\HYDROCODONE [Concomitant]
     Active Substance: ACETAMINOPHEN\HYDROCODONE
  3. PANTOPRAZOLE [Concomitant]
     Active Substance: PANTOPRAZOLE
  4. CLONIDINE [Concomitant]
     Active Substance: CLONIDINE
  5. ALPRAZOLAM [Concomitant]
     Active Substance: ALPRAZOLAM
  6. LORAZEPAM [Concomitant]
     Active Substance: LORAZEPAM
  7. ROBAFEM DM [Concomitant]
  8. LIDOCAINE [Concomitant]
     Active Substance: LIDOCAINE
  9. LOSARTAN [Concomitant]
     Active Substance: LOSARTAN

REACTIONS (5)
  - Musculoskeletal disorder [None]
  - Musculoskeletal disorder [None]
  - Impaired driving ability [None]
  - Gait inability [None]
  - Treatment noncompliance [None]

NARRATIVE: CASE EVENT DATE: 20240216
